FAERS Safety Report 15287694 (Version 3)
Quarter: 2018Q4

REPORT INFORMATION
  Report Type: Spontaneous
  Country: US (occurrence: US)
  Receive Date: 20180817
  Receipt Date: 20181107
  Transmission Date: 20190204
  Serious: No
  Sender: FDA-Public Use
  Company Number: US-BIOGEN-2018BI00620410

PATIENT
  Age: 38 Year
  Sex: Female

DRUGS (2)
  1. TECFIDERA [Suspect]
     Active Substance: DIMETHYL FUMARATE
     Indication: MULTIPLE SCLEROSIS
     Route: 048
     Dates: start: 20180731
  2. TECFIDERA [Suspect]
     Active Substance: DIMETHYL FUMARATE
     Dosage: MAINTENANCE DOSE
     Route: 048
     Dates: start: 20180805

REACTIONS (7)
  - Gastrointestinal sounds abnormal [Recovered/Resolved]
  - Pruritus [Unknown]
  - Hot flush [Recovered/Resolved]
  - Muscle twitching [Not Recovered/Not Resolved]
  - Hyperaesthesia [Unknown]
  - Nausea [Recovered/Resolved]
  - Skin burning sensation [Unknown]

NARRATIVE: CASE EVENT DATE: 20180809
